FAERS Safety Report 4371775-5 (Version None)
Quarter: 2004Q2

REPORT INFORMATION
  Report Type: 
  Country: None (occurrence: None)
  Receive Date: 20040602
  Receipt Date: 20040520
  Transmission Date: 20050107
  Serious: No
  Sender: FDA-Public Use
  Company Number: 03P-163-0210337-00

PATIENT
  Age: 33 Year
  Sex: Female
  Weight: 58.9676 kg

DRUGS (15)
  1. MERIDIA [Suspect]
     Indication: WEIGHT CONTROL
     Dosage: 5 MG, 1 IN 1 D, PER ORAL (SEE IMAGE)
     Route: 048
     Dates: start: 20010301, end: 20010401
  2. MERIDIA [Suspect]
     Indication: WEIGHT CONTROL
     Dosage: 5 MG, 1 IN 1 D, PER ORAL (SEE IMAGE)
     Route: 048
     Dates: start: 20010401, end: 20010501
  3. MERIDIA [Suspect]
     Indication: WEIGHT CONTROL
     Dosage: 5 MG, 1 IN 1 D, PER ORAL (SEE IMAGE)
     Route: 048
     Dates: start: 20010501, end: 20020101
  4. MERIDIA [Suspect]
     Indication: WEIGHT CONTROL
     Dosage: 5 MG, 1 IN 1 D, PER ORAL (SEE IMAGE)
     Route: 048
     Dates: start: 20030115, end: 20030131
  5. EUGYNON [Concomitant]
  6. PRENATAL PLUS [Concomitant]
  7. ACETAMINOPHEN [Concomitant]
  8. IBUPROFEN [Concomitant]
  9. CO-ADVIL [Concomitant]
  10. HYPERICUM PERFORATUM [Concomitant]
  11. PSEUDOEPHEDRINE HYDROCHLORIDE [Concomitant]
  12. ALPRAZOLAM [Concomitant]
  13. EYE DROPS [Concomitant]
  14. CELECOXIB [Concomitant]
  15. GABAPENTIN [Concomitant]

REACTIONS (49)
  - ANXIETY [None]
  - ARNOLD-CHIARI MALFORMATION [None]
  - ARTHRALGIA [None]
  - ARTHROPATHY [None]
  - ASTHENIA [None]
  - BLOOD GLUCOSE INCREASED [None]
  - BLOOD PRESSURE DECREASED [None]
  - BLOOD PRESSURE FLUCTUATION [None]
  - BRADYCARDIA [None]
  - BUNDLE BRANCH BLOCK RIGHT [None]
  - BURNING SENSATION [None]
  - CARDIAC DISORDER [None]
  - CARDIAC MURMUR [None]
  - CHEST DISCOMFORT [None]
  - CRUSH SYNDROME [None]
  - DIZZINESS [None]
  - DRUG EFFECT DECREASED [None]
  - DRUG EXPOSURE DURING PREGNANCY [None]
  - DRUG INEFFECTIVE [None]
  - ECHOCARDIOGRAM ABNORMAL [None]
  - ELECTROCARDIOGRAM ST-T CHANGE [None]
  - ELECTROCUTION [None]
  - FEELING HOT [None]
  - HEART RATE INCREASED [None]
  - HYPERHIDROSIS [None]
  - HYPERTENSION [None]
  - HYPOAESTHESIA [None]
  - LABORATORY TEST ABNORMAL [None]
  - LOWER RESPIRATORY TRACT INFECTION [None]
  - MALIGNANT HYPERTENSION [None]
  - MONONEUROPATHY [None]
  - NAUSEA [None]
  - NERVE COMPRESSION [None]
  - NEUROPATHY PERIPHERAL [None]
  - NYSTAGMUS [None]
  - OSTEOARTHRITIS [None]
  - PAIN IN EXTREMITY [None]
  - PARAESTHESIA [None]
  - PHAEOCHROMOCYTOMA [None]
  - PREGNANCY [None]
  - REBOUND HYPERTENSION [None]
  - RENAL ARTERY STENOSIS [None]
  - SENSATION OF BLOCK IN EAR [None]
  - SINUS ARRHYTHMIA [None]
  - SINUS BRADYCARDIA [None]
  - STRESS SYMPTOMS [None]
  - SYNCOPE VASOVAGAL [None]
  - UPPER RESPIRATORY TRACT INFECTION [None]
  - VERTIGO [None]
